FAERS Safety Report 8797194 (Version 2)
Quarter: 2012Q4

REPORT INFORMATION
  Report Type: 
  Country: FR (occurrence: FR)
  Receive Date: 20120919
  Receipt Date: 20121213
  Transmission Date: 20130627
  Serious: Yes (Other)
  Sender: FDA-Public Use
  Company Number: FR-ROCHE-1130302

PATIENT
  Age: 81 Year
  Sex: Female

DRUGS (3)
  1. LUCENTIS [Suspect]
     Indication: AGE-RELATED MACULAR DEGENERATION
     Route: 050
     Dates: start: 20100924
  2. LUCENTIS [Suspect]
     Route: 050
     Dates: start: 20101105, end: 20101105
  3. LUCENTIS [Suspect]
     Route: 050
     Dates: start: 20101211

REACTIONS (2)
  - Choroidal detachment [Recovered/Resolved with Sequelae]
  - Blindness [Unknown]
